FAERS Safety Report 22295422 (Version 1)
Quarter: 2023Q2

REPORT INFORMATION
  Report Type: Spontaneous
  Country: US (occurrence: None)
  Receive Date: 20230505
  Receipt Date: 20230505
  Transmission Date: 20230721
  Serious: Yes (Hospitalization)
  Sender: FDA-Public Use
  Company Number: None

PATIENT
  Sex: Female

DRUGS (14)
  1. PIQRAY [Suspect]
     Active Substance: ALPELISIB
     Dosage: FREQUENCY : DAILY;?
     Route: 048
  2. ALBUTEROL AER HFA [Concomitant]
  3. AZELASTINE SPR [Concomitant]
  4. BREO ELLIPTA INH [Concomitant]
  5. CELECOXIB [Concomitant]
  6. ESCITALOPRAM [Concomitant]
     Active Substance: ESCITALOPRAM OXALATE
  7. FLUTIC/SALME AER [Concomitant]
  8. FLUTICASONE SPR [Concomitant]
  9. GABAPENTIN [Concomitant]
     Active Substance: GABAPENTIN
  10. ACETAMINOPHEN\HYDROCODONE [Concomitant]
     Active Substance: ACETAMINOPHEN\HYDROCODONE
  11. LATANOPROST SOL [Concomitant]
  12. MONTELUKAST [Concomitant]
     Active Substance: MONTELUKAST SODIUM
  13. OXYCODONE AND ACETAMINOPHEN [Concomitant]
     Active Substance: ACETAMINOPHEN\OXYCODONE HYDROCHLORIDE
  14. VERAPAMIL [Concomitant]
     Active Substance: VERAPAMIL HYDROCHLORIDE

REACTIONS (5)
  - Knee arthroplasty [None]
  - Fall [None]
  - Femur fracture [None]
  - Weight bearing difficulty [None]
  - Fatigue [None]
